FAERS Safety Report 17705085 (Version 1)
Quarter: 2020Q2

REPORT INFORMATION
  Report Type: Spontaneous
  Country: US (occurrence: US)
  Receive Date: 20200424
  Receipt Date: 20200424
  Transmission Date: 20200714
  Serious: No
  Sender: FDA-Public Use
  Company Number: US-PFIZER INC-2020163692

PATIENT
  Age: 67 Year
  Sex: Male

DRUGS (1)
  1. SIROLIMUS. [Suspect]
     Active Substance: SIROLIMUS
     Indication: PROPHYLAXIS AGAINST GRAFT VERSUS HOST DISEASE
     Dosage: 1 MG, 3X/DAY [1 MG TABLET, TAKE 1 TABLET 3 TIMES A DAY]

REACTIONS (3)
  - Product used for unknown indication [Unknown]
  - Off label use [Unknown]
  - Liver function test abnormal [Unknown]
